FAERS Safety Report 5314657-4 (Version None)
Quarter: 2007Q2

REPORT INFORMATION
  Report Type: 
  Country: None (occurrence: None)
  Receive Date: 20070502
  Receipt Date: 20070423
  Transmission Date: 20071010
  Serious: Yes (Hospitalization)
  Sender: FDA-Public Use
  Company Number: TW-JNJFOC-20070307221

PATIENT
  Age: 73 Year
  Sex: Female

DRUGS (4)
  1. GALANTAMINE HYDROBROMIDE [Suspect]
     Indication: DEMENTIA ALZHEIMER'S TYPE
  2. GALANTAMINE HYDROBROMIDE [Suspect]
     Indication: DEMENTIA
  3. GINKGOFLAVONGLYCOSIDE [Concomitant]
  4. MAGNESIUM OXIDE [Concomitant]

REACTIONS (1)
  - PLEUROTHOTONUS [None]
